FAERS Safety Report 5995897-8 (Version None)
Quarter: 2008Q4

REPORT INFORMATION
  Report Type: 
  Country: None (occurrence: None)
  Receive Date: 20081212
  Receipt Date: 20081003
  Transmission Date: 20090506
  Serious: No
  Sender: FDA-Public Use
  Company Number: US-ABBOTT-08P-163-0479858-00

PATIENT
  Sex: Female
  Weight: 96.248 kg

DRUGS (4)
  1. HUMIRA [Suspect]
     Indication: PSORIASIS
     Route: 058
     Dates: start: 20080910, end: 20080910
  2. HUMIRA [Suspect]
     Route: 058
     Dates: start: 20080918, end: 20080918
  3. HUMIRA [Suspect]
     Route: 058
     Dates: start: 20081002
  4. UNSPECIFIED MEDICATION [Concomitant]
     Indication: PSORIASIS

REACTIONS (3)
  - ACCIDENTAL EXPOSURE [None]
  - INJECTION SITE HAEMORRHAGE [None]
  - INJECTION SITE NODULE [None]
